FAERS Safety Report 5230321-4 (Version None)
Quarter: 2007Q1

REPORT INFORMATION
  Report Type: 
  Country: None (occurrence: None)
  Receive Date: 20070206
  Receipt Date: 20070124
  Transmission Date: 20070707
  Serious: Yes (Hospitalization)
  Sender: FDA-Public Use
  Company Number: DE-PFIZER INC-2007007507

PATIENT
  Sex: Male

DRUGS (5)
  1. SU-011,248 [Suspect]
     Indication: METASTATIC RENAL CELL CARCINOMA
     Route: 048
     Dates: start: 20060120, end: 20060124
  2. PANTOZOL [Concomitant]
     Route: 048
  3. ESIDRIX [Concomitant]
     Route: 048
     Dates: start: 19950101
  4. AMLODIPINE [Concomitant]
     Route: 048
     Dates: start: 19950101
  5. DECODERM [Concomitant]
     Route: 061
     Dates: start: 20060101

REACTIONS (1)
  - CHOLECYSTITIS [None]
